FAERS Safety Report 14534227 (Version 4)
Quarter: 2019Q1

REPORT INFORMATION
  Report Type: Spontaneous
  Country: ES (occurrence: ES)
  Receive Date: 20180215
  Receipt Date: 20190113
  Transmission Date: 20190417
  Serious: Yes (Hospitalization)
  Sender: FDA-Public Use
  Company Number: PHHY2018ES023320

PATIENT
  Age: 46 Year
  Sex: Female

DRUGS (6)
  1. SULFADIAZINA [Suspect]
     Active Substance: SULFADIAZINE
     Indication: TOXOPLASMOSIS
     Dosage: UNK UNK, QID (1-1-1-1)
     Route: 048
     Dates: start: 20170408, end: 20170419
  2. DILTIAZEM. [Suspect]
     Active Substance: DILTIAZEM
     Dosage: UNK
     Route: 048
  3. PIRIMETAMINA [Suspect]
     Active Substance: PYRIMETHAMINE
     Indication: TOXOPLASMOSIS
     Dosage: UNK UNK, QD
     Route: 048
     Dates: start: 20170408, end: 20170419
  4. TRIMETOPRIM SULFAMETOXAZOL [Concomitant]
     Active Substance: SULFAMETHOXAZOLE\TRIMETHOPRIM
     Indication: PRODUCT USED FOR UNKNOWN INDICATION
     Dosage: UNK
     Route: 048
     Dates: start: 20170421, end: 20170512
  5. DILTIAZEM. [Suspect]
     Active Substance: DILTIAZEM
     Dosage: UNK UNK, QD
     Route: 048
     Dates: start: 20170419
  6. DILTIAZEM. [Suspect]
     Active Substance: DILTIAZEM
     Indication: CALCINOSIS
     Dosage: UNK UNK, QD
     Route: 048
     Dates: start: 20170302

REACTIONS (1)
  - Drug reaction with eosinophilia and systemic symptoms [Recovered/Resolved]

NARRATIVE: CASE EVENT DATE: 20170415
